FAERS Safety Report 20503010 (Version 1)
Quarter: 2022Q1

REPORT INFORMATION
  Report Type: Spontaneous
  Country: US (occurrence: US)
  Receive Date: 20220222
  Receipt Date: 20220222
  Transmission Date: 20220424
  Serious: Yes (Other)
  Sender: FDA-Public Use
  Company Number: US-ALLERGAN-2139345US

PATIENT
  Age: 75 Year
  Sex: Male

DRUGS (1)
  1. OZURDEX [Suspect]
     Active Substance: DEXAMETHASONE
     Indication: Product used for unknown indication
     Dosage: 0.7 MG, SINGLE
     Route: 031
     Dates: start: 20211102, end: 20211102

REACTIONS (7)
  - Corneal oedema [Recovering/Resolving]
  - Vision blurred [Unknown]
  - Foreign body in eye [Unknown]
  - Device dislocation [Unknown]
  - Visual impairment [Unknown]
  - Contraindicated product administered [Unknown]
  - Eye pain [Unknown]

NARRATIVE: CASE EVENT DATE: 20211115
